FAERS Safety Report 14342840 (Version 1)
Quarter: 2018Q1

REPORT INFORMATION
  Report Type: Spontaneous
  Country: US (occurrence: US)
  Receive Date: 20180102
  Receipt Date: 20180102
  Transmission Date: 20180509
  Serious: No
  Sender: FDA-Public Use
  Company Number: US-BAYER-2017-251805

PATIENT
  Age: 19 Year
  Sex: Female

DRUGS (2)
  1. MIRENA [Suspect]
     Active Substance: LEVONORGESTREL
     Indication: CONTRACEPTION
     Dosage: 20 MCG/24HR, CONT
     Route: 015
     Dates: start: 201610, end: 20171229
  2. MIRENA [Suspect]
     Active Substance: LEVONORGESTREL
     Indication: CONTRACEPTION

REACTIONS (10)
  - Hypomenorrhoea [None]
  - Vaginal odour [Not Recovered/Not Resolved]
  - Abdominal pain lower [None]
  - Device expulsion [None]
  - Vulvovaginal dryness [None]
  - Vaginal discharge [None]
  - Post procedural discomfort [None]
  - Medical device pain [None]
  - Abdominal pain [None]
  - Vulvovaginal pain [None]

NARRATIVE: CASE EVENT DATE: 201610
